FAERS Safety Report 4945231-7 (Version None)
Quarter: 2006Q1

REPORT INFORMATION
  Report Type: 
  Country: None (occurrence: None)
  Receive Date: 20060118
  Receipt Date: 20050218
  Transmission Date: 20060701
  Serious: Yes (Hospitalization)
  Sender: FDA-Public Use
  Company Number: US-JNJFOC-20031201864

PATIENT
  Age: 48 Year
  Sex: Female
  Weight: 53.3 kg

DRUGS (5)
  1. DOXIL [Suspect]
     Indication: OVARIAN CANCER METASTATIC
     Dosage: 79 MG, 1 IN 4 WEEK, INTRAVENOUS
     Route: 042
     Dates: start: 20031007, end: 20031105
  2. TELCYTA (ANTINEOPLASTIC AGENTS) INJECTION [Suspect]
     Indication: OVARIAN CANCER METASTATIC
     Dosage: 1507 MG, 1 IN 4 WEEK, INTRAVENOUS
     Route: 042
     Dates: start: 20031007, end: 20031105
  3. SYNTHROID (LEVOTHYROXINE SODIUM) TABLETS [Concomitant]
  4. SENNA (SENNA) [Concomitant]
  5. FERROUS SULFATE TAB [Concomitant]

REACTIONS (4)
  - ABDOMINAL PAIN [None]
  - ANAEMIA [None]
  - DEEP VEIN THROMBOSIS [None]
  - FATIGUE [None]
